FAERS Safety Report 8125329-5 (Version None)
Quarter: 2012Q1

REPORT INFORMATION
  Report Type: 
  Country: None (occurrence: None)
  Receive Date: 20120209
  Receipt Date: 20111214
  Transmission Date: 20120608
  Serious: Yes (Hospitalization)
  Sender: FDA-Public Use
  Company Number: US-GLAXOSMITHKLINE-A0958521A

PATIENT
  Age: 47 Year
  Sex: Male

DRUGS (1)
  1. AVANDIA [Suspect]
     Indication: DIABETES MELLITUS
     Dosage: 4MG PER DAY
     Route: 048
     Dates: start: 20010101, end: 20090101

REACTIONS (2)
  - INSOMNIA [None]
  - CARDIAC FAILURE CONGESTIVE [None]
